FAERS Safety Report 18901377 (Version 3)
Quarter: 2021Q1

REPORT INFORMATION
  Report Type: Spontaneous
  Country: US (occurrence: US)
  Receive Date: 20210217
  Receipt Date: 20210223
  Transmission Date: 20210420
  Serious: Yes (Hospitalization, Other)
  Sender: FDA-Public Use
  Company Number: US-009507513-2005USA001184

PATIENT
  Sex: Female

DRUGS (8)
  1. CRESTOR [Concomitant]
     Active Substance: ROSUVASTATIN CALCIUM
     Indication: BLOOD CHOLESTEROL INCREASED
     Dosage: 1/2 TABLET AT BEDTIME
     Route: 048
     Dates: start: 2011
  2. XARELTO [Concomitant]
     Active Substance: RIVAROXABAN
     Indication: ANTICOAGULANT THERAPY
     Dosage: 20 MILLIGRAM, 1 TABLET, QD
     Route: 048
     Dates: start: 2016
  3. ZOSTAVAX [Suspect]
     Active Substance: VARICELLA-ZOSTER VIRUS STRAIN OKA/MERCK LIVE ANTIGEN
     Indication: ROUTINE HEALTH MAINTENANCE
     Route: 058
     Dates: start: 20170208
  4. GABAPENTIN. [Suspect]
     Active Substance: GABAPENTIN
     Indication: HERPES ZOSTER
     Dosage: UNK
  5. KLONOPIN [Concomitant]
     Active Substance: CLONAZEPAM
     Indication: ANXIETY
     Dosage: 1/2 OR 1 TABLET, 4 TIMES DAILY, QID
     Route: 048
     Dates: start: 2011
  6. PRINIVIL [Suspect]
     Active Substance: LISINOPRIL
     Indication: ATRIAL FIBRILLATION
     Dosage: 10 MILLIGRAM, 1 TABLET, QD
     Route: 048
     Dates: start: 2017, end: 2020
  7. TRAZODONE HYDROCHLORIDE. [Concomitant]
     Active Substance: TRAZODONE HYDROCHLORIDE
     Indication: DEPRESSION
     Dosage: 50 MILLIGRAM, 1 TABLET, QD
     Dates: start: 2016, end: 2020
  8. ZOSTAVAX [Suspect]
     Active Substance: VARICELLA-ZOSTER VIRUS STRAIN OKA/MERCK LIVE ANTIGEN
     Indication: PROPHYLAXIS

REACTIONS (45)
  - Hyperthyroidism [Unknown]
  - Visual impairment [Unknown]
  - Constipation [Unknown]
  - Blindness [Unknown]
  - Chronic kidney disease [Unknown]
  - Punctate keratitis [Unknown]
  - Dizziness [Unknown]
  - Balance disorder [Unknown]
  - Visual acuity reduced [Unknown]
  - Epistaxis [Unknown]
  - Eye pain [Not Recovered/Not Resolved]
  - Haematuria [Unknown]
  - Cholecystectomy [Unknown]
  - Foreign body sensation in eyes [Unknown]
  - Spinal compression fracture [Unknown]
  - Type V hyperlipidaemia [Unknown]
  - Head injury [Unknown]
  - Post herpetic neuralgia [Unknown]
  - Dysphagia [Unknown]
  - Presbyopia [Unknown]
  - Restless legs syndrome [Unknown]
  - Photopsia [Unknown]
  - Retinal pigmentation [Unknown]
  - Contusion [Unknown]
  - Insomnia [Unknown]
  - Back pain [Unknown]
  - Intervertebral disc disorder [Unknown]
  - Osteoporosis [Unknown]
  - Anxiety [Unknown]
  - Deafness [Unknown]
  - Neck pain [Unknown]
  - Herpes zoster [Not Recovered/Not Resolved]
  - Vision blurred [Not Recovered/Not Resolved]
  - Hypertension [Unknown]
  - Fall [Unknown]
  - Abdominal pain [Unknown]
  - Product use in unapproved indication [Unknown]
  - Dry age-related macular degeneration [Unknown]
  - Posterior capsule opacification [Unknown]
  - Nerve injury [Unknown]
  - Pain [Unknown]
  - Osteoarthritis [Unknown]
  - Vitreous floaters [Unknown]
  - Hypersensitivity [Unknown]
  - Arthralgia [Unknown]

NARRATIVE: CASE EVENT DATE: 201705
